FAERS Safety Report 7355962-X (Version None)
Quarter: 2011Q1

REPORT INFORMATION
  Report Type: 
  Country: None (occurrence: None)
  Receive Date: 20110316
  Receipt Date: 20101230
  Transmission Date: 20110831
  Serious: No
  Sender: FDA-Public Use
  Company Number: US-ABBOTT-11P-163-0694747-00

PATIENT
  Sex: Female
  Weight: 63.56 kg

DRUGS (4)
  1. UNKNOWN HIGH BLOOD PRESSURE MEDICATION [Concomitant]
     Indication: HYPERTENSION
     Route: 048
     Dates: start: 20100901
  2. TRILIPIX [Suspect]
     Indication: BLOOD CHOLESTEROL
     Route: 048
     Dates: start: 20101101
  3. UNKNOWN SLEEP PILL [Concomitant]
     Indication: INSOMNIA
     Route: 048
     Dates: start: 20100101
  4. DYAZIDE [Concomitant]
     Indication: HYPERTENSION
     Route: 048

REACTIONS (3)
  - POLLAKIURIA [None]
  - PAIN IN EXTREMITY [None]
  - BACK PAIN [None]
